FAERS Safety Report 8151692-5 (Version None)
Quarter: 2012Q1

REPORT INFORMATION
  Report Type: 
  Country: None (occurrence: None)
  Receive Date: 20120221
  Receipt Date: 20120209
  Transmission Date: 20120608
  Serious: Yes (Hospitalization)
  Sender: FDA-Public Use
  Company Number: US-AMGEN-USASP2012004697

PATIENT
  Age: 49 Year
  Sex: Male

DRUGS (1)
  1. ENBREL [Suspect]
     Indication: RHEUMATOID ARTHRITIS
     Dosage: 50 MG, UNK
     Dates: start: 20060801

REACTIONS (7)
  - IRRITABLE BOWEL SYNDROME [None]
  - VISUAL ACUITY REDUCED [None]
  - ANAEMIA VITAMIN B12 DEFICIENCY [None]
  - BLOOD GLUCOSE FLUCTUATION [None]
  - FOOT FRACTURE [None]
  - NEUROPATHY PERIPHERAL [None]
  - MUSCULOSKELETAL STIFFNESS [None]
